FAERS Safety Report 7353417-X (Version None)
Quarter: 2011Q1

REPORT INFORMATION
  Report Type: 
  Country: None (occurrence: None)
  Receive Date: 20110310
  Receipt Date: 20110310
  Transmission Date: 20110831
  Serious: No
  Sender: FDA-Public Use
  Company Number: None

PATIENT
  Age: 18 Year
  Sex: Male
  Weight: 113.3993 kg

DRUGS (1)
  1. BUPROPION HCL [Suspect]
     Indication: DEPRESSION
     Dosage: 450 MG DAILY
     Dates: start: 20100606, end: 20100815

REACTIONS (2)
  - LIBIDO DECREASED [None]
  - ILL-DEFINED DISORDER [None]
